FAERS Safety Report 6431027-6 (Version None)
Quarter: 2009Q4

REPORT INFORMATION
  Report Type: 
  Country: None (occurrence: None)
  Receive Date: 20091106
  Receipt Date: 20091104
  Transmission Date: 20100525
  Serious: Yes (Death)
  Sender: FDA-Public Use
  Company Number: US-SANOFI-SYNTHELABO-F01200901055

PATIENT
  Sex: Male
  Weight: 79.1 kg

DRUGS (3)
  1. ANTIBIOTICS [Concomitant]
     Dosage: UNK
  2. CASODEX [Suspect]
     Dosage: 50 MG
     Route: 048
     Dates: start: 20090610, end: 20090710
  3. LEUPROLIDE ACETATE [Suspect]
     Indication: PROSTATE CANCER
     Dosage: 22.5 MG
     Route: 058
     Dates: start: 20090610, end: 20090901

REACTIONS (1)
  - MYOCARDIAL INFARCTION [None]
